FAERS Safety Report 18505153 (Version 2)
Quarter: 2021Q1

REPORT INFORMATION
  Report Type: Spontaneous
  Country: DE (occurrence: DE)
  Receive Date: 20201116
  Receipt Date: 20210119
  Transmission Date: 20210419
  Serious: Yes (Other)
  Sender: FDA-Public Use
  Company Number: DE-AUROBINDO-AUR-APL-2020-055859

PATIENT
  Sex: Female
  Weight: 99 kg

DRUGS (6)
  1. NERATINIB [Suspect]
     Active Substance: NERATINIB
     Indication: BREAST CANCER
     Dosage: 240 MILLIGRAM, ONCE A DAY
     Route: 048
     Dates: start: 20200925, end: 20201017
  2. LOPERAMID [Suspect]
     Active Substance: LOPERAMIDE
     Dosage: 2 MILLIGRAM, ONCE A DAY
     Route: 048
     Dates: start: 20201002
  3. SALBUTAMOL [Concomitant]
     Active Substance: ALBUTEROL
     Indication: ASTHMA
     Dosage: IF NEEDED
     Route: 048
  4. LOPERAMID [Suspect]
     Active Substance: LOPERAMIDE
     Indication: PROPHYLAXIS AGAINST DIARRHOEA
     Dosage: 4 MILLIGRAM, TWO TIMES A DAY
     Route: 048
     Dates: start: 20200929, end: 20201001
  5. NERATINIB [Suspect]
     Active Substance: NERATINIB
     Dosage: 240 MILLIGRAM, ONCE A DAY
     Route: 048
     Dates: start: 20200929
  6. FOSTER [Concomitant]
     Active Substance: BECLOMETHASONE\FORMOTEROL
     Indication: ASTHMA
     Dosage: 1 DOSAGE FORM, ONCE A DAY
     Route: 048

REACTIONS (2)
  - Diarrhoea [Recovered/Resolved]
  - Abdominal pain upper [Recovering/Resolving]

NARRATIVE: CASE EVENT DATE: 20200929
